FAERS Safety Report 4866004-X (Version None)
Quarter: 2005Q4

REPORT INFORMATION
  Report Type: 
  Country: None (occurrence: None)
  Receive Date: 20051221
  Receipt Date: 20051206
  Transmission Date: 20060501
  Serious: Yes (Other)
  Sender: FDA-Public Use
  Company Number: 200514229GDS

PATIENT
  Age: 78 Year
  Sex: Male

DRUGS (1)
  1. AVELOX [Suspect]
     Indication: CHRONIC OBSTRUCTIVE PULMONARY DISEASE

REACTIONS (2)
  - CEREBROVASCULAR ACCIDENT [None]
  - DIARRHOEA HAEMORRHAGIC [None]
